FAERS Safety Report 24991802 (Version 1)
Quarter: 2025Q1

REPORT INFORMATION
  Report Type: Spontaneous
  Country: US (occurrence: None)
  Receive Date: 20250220
  Receipt Date: 20250220
  Transmission Date: 20250409
  Serious: Yes (Hospitalization)
  Sender: FDA-CTU
  Company Number: None

PATIENT
  Age: 95 Year
  Sex: Male

DRUGS (2)
  1. SPIRONOLACTONE [Suspect]
     Active Substance: SPIRONOLACTONE
     Indication: Cardiac failure congestive
     Dosage: FREQUENCY : DAILY;?
     Route: 048
     Dates: start: 20250127, end: 20250204
  2. LOSARTAN [Suspect]
     Active Substance: LOSARTAN
     Indication: Cardiac failure congestive
     Dosage: FREQUENCY : TWICE A DAY;?
     Route: 048
     Dates: start: 20250127

REACTIONS (3)
  - Hyperkalaemia [None]
  - Acute kidney injury [None]
  - Therapy cessation [None]

NARRATIVE: CASE EVENT DATE: 20250206
